FAERS Safety Report 22142619 (Version 1)
Quarter: 2023Q1

REPORT INFORMATION
  Report Type: Spontaneous
  Country: US (occurrence: None)
  Receive Date: 20230324
  Receipt Date: 20230324
  Transmission Date: 20230417
  Serious: Yes (Hospitalization)
  Sender: FDA-Public Use
  Company Number: None

PATIENT
  Age: 79 Year
  Sex: Male

DRUGS (11)
  1. OPSUMIT [Suspect]
     Active Substance: MACITENTAN
     Indication: Pulmonary hypertension
     Dosage: FREQUENCY : DAILY;?
     Route: 048
     Dates: start: 20180820
  2. SILDENAFIL [Concomitant]
  3. GLIPIZIDE [Concomitant]
     Active Substance: GLIPIZIDE
  4. EMPAGLIFLOZIN [Concomitant]
     Active Substance: EMPAGLIFLOZIN
  5. ASPIRIN [Concomitant]
     Active Substance: ASPIRIN
  6. LOSARTAN [Concomitant]
     Active Substance: LOSARTAN
  7. ATORVASTATIN [Concomitant]
     Active Substance: ATORVASTATIN
  8. OMEPRAZOLE [Concomitant]
     Active Substance: OMEPRAZOLE
  9. FUROSEMIDE [Concomitant]
     Active Substance: FUROSEMIDE
  10. glucosamine sulf-chondroitin [Concomitant]
  11. calcium citrate + Vit D3 [Concomitant]

REACTIONS (5)
  - Ventilation/perfusion scan abnormal [None]
  - Dyspnoea [None]
  - Chronic obstructive pulmonary disease [None]
  - Pulmonary hypertension [None]
  - Interstitial lung disease [None]

NARRATIVE: CASE EVENT DATE: 20230324
